FAERS Safety Report 4286202-6 (Version None)
Quarter: 2004Q1

REPORT INFORMATION
  Report Type: 
  Country: None (occurrence: None)
  Receive Date: 20040204
  Receipt Date: 20040204
  Transmission Date: 20041129
  Serious: Yes (Disabling)
  Sender: FDA-Public Use
  Company Number: None

PATIENT

DRUGS (4)
  1. VIAGRA [Suspect]
     Indication: ERECTILE DYSFUNCTION
     Dosage: PRN PO
     Route: 048
     Dates: start: 20020102
  2. GLUCOPHAGE [Concomitant]
  3. LIPITOR [Concomitant]
  4. MONOPRIL [Concomitant]

REACTIONS (3)
  - DYSTONIA [None]
  - SPEECH DISORDER [None]
  - TONGUE DISORDER [None]
